FAERS Safety Report 7621513-5 (Version None)
Quarter: 2011Q3

REPORT INFORMATION
  Report Type: 
  Country: None (occurrence: None)
  Receive Date: 20110719
  Receipt Date: 20110718
  Transmission Date: 20111222
  Serious: Yes (Other)
  Sender: FDA-Public Use
  Company Number: BR-PFIZER INC-2011138598

PATIENT
  Age: 20 Year
  Sex: Male
  Weight: 76 kg

DRUGS (6)
  1. LONITEN [Suspect]
     Indication: HYPERTENSION
     Dosage: 10 MG (ONE TABLET), TWICE DAILY
     Route: 048
     Dates: start: 20080101
  2. LONITEN [Suspect]
     Dosage: 10 MG (ONE TABLET), 1X/DAY
     Route: 048
  3. RENAGEL [Concomitant]
     Dosage: UNK
  4. DIOVAN [Concomitant]
     Dosage: 360 MG, UNK
  5. PROPRANOLOL [Concomitant]
     Dosage: 40 MG, UNK
  6. APRESOLINA [Concomitant]
     Dosage: 50 MG, 2X/DAY

REACTIONS (8)
  - HEADACHE [None]
  - HYPERTENSION [None]
  - VOMITING [None]
  - FEELING ABNORMAL [None]
  - MEDICATION ERROR [None]
  - SWELLING [None]
  - BLOOD PHOSPHORUS INCREASED [None]
  - RETCHING [None]
